FAERS Safety Report 20796396 (Version 1)
Quarter: 2022Q2

REPORT INFORMATION
  Report Type: Spontaneous
  Country: FR (occurrence: FR)
  Receive Date: 20220506
  Receipt Date: 20220506
  Transmission Date: 20220721
  Serious: Yes (Other)
  Sender: FDA-Public Use
  Company Number: None

PATIENT
  Age: 38 Year
  Sex: Male
  Weight: 70 kg

DRUGS (4)
  1. TEGRETOL [Interacting]
     Active Substance: CARBAMAZEPINE
     Indication: Schizophrenia
     Dosage: 800 MG, QD
     Route: 048
  2. VALPROMIDE [Interacting]
     Active Substance: VALPROMIDE
     Indication: Schizophrenia
     Dosage: 1200 MG, QD
     Route: 048
     Dates: start: 20220307
  3. LOXAPINE [Interacting]
     Active Substance: LOXAPINE
     Indication: Schizophrenia
     Dosage: 150 MG, QD
     Route: 048
     Dates: start: 20171030
  4. RISPERIDONE [Interacting]
     Active Substance: RISPERIDONE
     Indication: Schizophrenia
     Dosage: 8 MG, QD
     Route: 048
     Dates: start: 20220309

REACTIONS (2)
  - Hyperprolactinaemia [Not Recovered/Not Resolved]
  - Parkinsonism [Not Recovered/Not Resolved]

NARRATIVE: CASE EVENT DATE: 20220408
